FAERS Safety Report 25247755 (Version 3)
Quarter: 2025Q4

REPORT INFORMATION
  Report Type: Report from Study
  Country: QA (occurrence: QA)
  Receive Date: 20250428
  Receipt Date: 20251017
  Transmission Date: 20260117
  Serious: Yes (Other)
  Sender: ABBVIE
  Company Number: QA-ABBVIE-6247410

PATIENT
  Sex: Female

DRUGS (3)
  1. HUMIRA [Suspect]
     Active Substance: ADALIMUMAB
     Indication: Rheumatoid arthritis
     Route: 058
     Dates: start: 2025
  2. HUMIRA [Suspect]
     Active Substance: ADALIMUMAB
     Dosage: LAST ADMIN DATE: 2025
     Route: 058
     Dates: start: 20250310
  3. HUMIRA [Suspect]
     Active Substance: ADALIMUMAB
     Dosage: FIRST ADMIN DATE: 2025
     Route: 058

REACTIONS (3)
  - Blindness unilateral [Unknown]
  - Intraocular pressure increased [Unknown]
  - Visual impairment [Unknown]

NARRATIVE: CASE EVENT DATE: 20250101
